FAERS Safety Report 5951081-5 (Version None)
Quarter: 2008Q4

REPORT INFORMATION
  Report Type: 
  Country: None (occurrence: None)
  Receive Date: 20081111
  Receipt Date: 20081111
  Transmission Date: 20090506
  Serious: Yes (Hospitalization)
  Sender: FDA-Public Use
  Company Number: None

PATIENT
  Sex: Female
  Weight: 59.2 kg

DRUGS (3)
  1. BORTEZOMIB [Suspect]
     Indication: INHIBITING ANTIBODIES
     Dosage: 2.2 MG ONCE IV 2.1 MG TWICE IV
     Route: 042
     Dates: start: 20081021
  2. BORTEZOMIB [Suspect]
     Indication: INHIBITING ANTIBODIES
     Dosage: 2.2 MG ONCE IV 2.1 MG TWICE IV
     Route: 042
     Dates: start: 20081024
  3. BORTEZOMIB [Suspect]
     Indication: INHIBITING ANTIBODIES
     Dosage: 2.2 MG ONCE IV 2.1 MG TWICE IV
     Route: 042
     Dates: start: 20081028

REACTIONS (2)
  - GENITAL ABSCESS [None]
  - VULVOVAGINAL PAIN [None]
